FAERS Safety Report 8418071-4 (Version None)
Quarter: 2012Q2

REPORT INFORMATION
  Report Type: 
  Country: None (occurrence: None)
  Receive Date: 20120607
  Receipt Date: 20120530
  Transmission Date: 20120825
  Serious: Yes (Hospitalization, Other)
  Sender: FDA-Public Use
  Company Number: US-ASTRAZENECA-2011SE32270

PATIENT
  Age: 43 Year
  Sex: Female

DRUGS (15)
  1. ROLAIDS [Concomitant]
  2. CLENIDINE [Concomitant]
  3. CARVEDILOL [Concomitant]
  4. ZOCOR [Concomitant]
  5. NEXIUM [Suspect]
     Indication: GASTROOESOPHAGEAL REFLUX DISEASE
     Route: 048
     Dates: start: 20030101
  6. METFORMIN HCL [Concomitant]
  7. BISMUTH SUBSALICYLATE [Concomitant]
  8. IBUPROFEN (ADVIL) [Concomitant]
  9. CRESTOR [Concomitant]
  10. AMBIEN [Concomitant]
  11. LASIX [Concomitant]
  12. XANAX [Concomitant]
  13. LISINOPRIL [Concomitant]
  14. HYDROCODONE BITARTRATE [Concomitant]
  15. LOVAZA [Concomitant]

REACTIONS (8)
  - CHEST PAIN [None]
  - BONE DISORDER [None]
  - OSTEOPOROSIS [None]
  - ABORTION SPONTANEOUS [None]
  - INSOMNIA [None]
  - ANKLE FRACTURE [None]
  - INFECTION [None]
  - ARTHRITIS [None]
